FAERS Safety Report 7568268-0 (Version None)
Quarter: 2011Q2

REPORT INFORMATION
  Report Type: 
  Country: None (occurrence: None)
  Receive Date: 20110623
  Receipt Date: 20110404
  Transmission Date: 20111010
  Serious: Yes (Other)
  Sender: FDA-Public Use
  Company Number: DE-ROCHE-768434

PATIENT
  Sex: Male
  Weight: 80 kg

DRUGS (9)
  1. BONIVA [Suspect]
     Indication: OSTEOPOROSIS
     Route: 042
     Dates: start: 20090518, end: 20110214
  2. XIPAMID [Concomitant]
  3. TERAZOSIN HCL [Concomitant]
     Dosage: REPORTED AS: TERAZOSIN HEXAL
     Route: 048
  4. OMEPRAZOLE [Concomitant]
     Dosage: REPORTED AS: OMEP 20
  5. BISOPROLOL [Concomitant]
     Dosage: REPORTED AS: BISOPROLOL TAD
     Route: 048
  6. GINGIUM [Concomitant]
     Dosage: REPORTED AS: GINGIUM INTENS 120
     Route: 048
  7. CALCIGEN D [Concomitant]
  8. CERNILTON [Concomitant]
     Indication: PROSTATIC DISORDER
  9. GALACORDIN [Concomitant]
     Dosage: FREQUENCY: 2

REACTIONS (3)
  - ERYSIPELAS [None]
  - PHLEBITIS [None]
  - LYMPHADENITIS [None]
